FAERS Safety Report 6243379-0 (Version None)
Quarter: 2009Q2

REPORT INFORMATION
  Report Type: 
  Country: None (occurrence: None)
  Receive Date: 20090622
  Receipt Date: 20090622
  Transmission Date: 20091009
  Serious: Yes (Life-Threatening)
  Sender: FDA-Public Use
  Company Number: None

PATIENT
  Sex: Female
  Weight: 52.1637 kg

DRUGS (3)
  1. ZICAM NASAL GEL MATRIXX [Suspect]
     Indication: NASAL CONGESTION
     Dosage: 1 SPRAY ONCE 1 TIME USE
     Route: 045
     Dates: start: 20090314, end: 20090314
  2. ZICAM NASAL GEL MATRIXX [Suspect]
     Indication: NASAL DISORDER
     Dosage: 1 SPRAY ONCE 1 TIME USE
     Route: 045
     Dates: start: 20090314, end: 20090314
  3. ZICAM NASAL GEL MATRIXX [Suspect]
     Indication: NASOPHARYNGITIS
     Dosage: 1 SPRAY ONCE 1 TIME USE
     Route: 045
     Dates: start: 20090314, end: 20090314

REACTIONS (3)
  - ANOSMIA [None]
  - BURNING SENSATION [None]
  - NASAL DISCOMFORT [None]
